FAERS Safety Report 7557231-1 (Version None)
Quarter: 2011Q2

REPORT INFORMATION
  Report Type: 
  Country: None (occurrence: None)
  Receive Date: 20110620
  Receipt Date: 20110330
  Transmission Date: 20111010
  Serious: No
  Sender: FDA-Public Use
  Company Number: US-MYLANLABS-2011S1005585

PATIENT
  Age: 73 Year
  Sex: Female
  Weight: 95.26 kg

DRUGS (4)
  1. CORTISONE /00014602/ [Concomitant]
  2. PREDNISONE [Concomitant]
  3. PERFOROMIST [Suspect]
     Indication: DYSPNOEA
     Route: 055
     Dates: start: 20110214
  4. CIPROFLOXACIN [Concomitant]

REACTIONS (1)
  - ALOPECIA [None]
